FAERS Safety Report 4947085-1 (Version None)
Quarter: 2006Q1

REPORT INFORMATION
  Report Type: 
  Country: None (occurrence: None)
  Receive Date: 20060314
  Receipt Date: 20060308
  Transmission Date: 20060701
  Serious: Yes (Life-Threatening, Other)
  Sender: FDA-Public Use
  Company Number: 2006US-01762

PATIENT
  Age: 16 Year
  Sex: Male

DRUGS (1)
  1. ISOTRETINOIN [Suspect]
     Dosage: 60 MG, TID; ORAL
     Route: 048
     Dates: start: 20051025, end: 20060308

REACTIONS (1)
  - SUICIDE ATTEMPT [None]
